FAERS Safety Report 13337181 (Version 1)
Quarter: 2017Q1

REPORT INFORMATION
  Report Type: Spontaneous
  Country: US (occurrence: US)
  Receive Date: 20170314
  Receipt Date: 20170314
  Transmission Date: 20170428
  Serious: Yes (Disabling, Other)
  Sender: FDA-Public Use
  Company Number: None

PATIENT
  Age: 73 Year
  Sex: Female
  Weight: 77.85 kg

DRUGS (14)
  1. CALCIUM + D [Concomitant]
     Active Substance: CALCIUM\VITAMIN D
  2. FOLIC ACID. [Concomitant]
     Active Substance: FOLIC ACID
  3. DULOXETINEDELAY-RELEASED CAPSULE [Suspect]
     Active Substance: DULOXETINE
     Indication: PAIN
     Dosage: ?          QUANTITY:1 CAPSULE(S);?
     Route: 048
     Dates: start: 20140907, end: 20170301
  4. CRESTOR [Concomitant]
     Active Substance: ROSUVASTATIN CALCIUM
  5. FLEXERIL [Concomitant]
     Active Substance: CYCLOBENZAPRINE HYDROCHLORIDE
  6. NORTRIPTYLENE [Concomitant]
  7. MONTILUCAST [Concomitant]
  8. DULOXETINEDELAY-RELEASED CAPSULE [Suspect]
     Active Substance: DULOXETINE
     Indication: DEPRESSION
     Dosage: ?          QUANTITY:1 CAPSULE(S);?
     Route: 048
     Dates: start: 20140907, end: 20170301
  9. METHOTREXATE (INJECTION) [Concomitant]
  10. VITAMIN D3 [Concomitant]
     Active Substance: CHOLECALCIFEROL
  11. OXYCODONE [Concomitant]
     Active Substance: OXYCODONE
  12. BUPROPION XL [Concomitant]
     Active Substance: BUPROPION
  13. BABY ASPIRIN [Concomitant]
     Active Substance: ASPIRIN
  14. TYLENOL [Concomitant]
     Active Substance: ACETAMINOPHEN

REACTIONS (2)
  - Hyperhidrosis [None]
  - Dehydration [None]
